FAERS Safety Report 20481625 (Version 3)
Quarter: 2022Q2

REPORT INFORMATION
  Report Type: Report from Study
  Country: DE (occurrence: DE)
  Receive Date: 20220216
  Receipt Date: 20220627
  Transmission Date: 20220721
  Serious: Yes (Death, Life-Threatening, Hospitalization, Disabling, Other)
  Sender: FDA-Public Use
  Company Number: DE-BRISTOL-MYERS SQUIBB COMPANY-BMS-2022-019711

PATIENT
  Age: 63 Year
  Sex: Male

DRUGS (8)
  1. NIVOLUMAB [Suspect]
     Active Substance: NIVOLUMAB
     Indication: Malignant melanoma
     Dosage: 108.0 MILLIGRAM
     Route: 065
     Dates: start: 20191122
  2. NIVOLUMAB [Suspect]
     Active Substance: NIVOLUMAB
     Dosage: 145 MILLIGRAM, Q3WK
     Route: 042
     Dates: start: 20191122, end: 20200127
  3. NIVOLUMAB [Suspect]
     Active Substance: NIVOLUMAB
     Dosage: 240 MILLIGRAM
     Route: 065
     Dates: start: 20200414, end: 20211213
  4. NIVOLUMAB [Suspect]
     Active Substance: NIVOLUMAB
     Route: 042
     Dates: start: 20191122, end: 20220304
  5. IPILIMUMAB [Suspect]
     Active Substance: IPILIMUMAB
     Indication: Malignant melanoma
     Dosage: 324.0 MILLIGRAM, Q3WK
     Route: 065
     Dates: start: 20191122
  6. IPILIMUMAB [Suspect]
     Active Substance: IPILIMUMAB
     Dosage: 435 MILLIGRAM, Q3WK
     Route: 042
     Dates: start: 20191122, end: 20200127
  7. IPILIMUMAB [Suspect]
     Active Substance: IPILIMUMAB
     Route: 042
     Dates: start: 20191122, end: 20220304
  8. METHYLPREDNISOLONE [Concomitant]
     Active Substance: METHYLPREDNISOLONE
     Indication: Product used for unknown indication
     Route: 065

REACTIONS (3)
  - Nervous system disorder [Fatal]
  - Malignant neoplasm progression [Recovering/Resolving]
  - Rheumatoid arthritis [Unknown]

NARRATIVE: CASE EVENT DATE: 20201001
